FAERS Safety Report 24347752 (Version 2)
Quarter: 2025Q1

REPORT INFORMATION
  Report Type: Report from Study
  Country: IT (occurrence: IT)
  Receive Date: 20240922
  Receipt Date: 20250116
  Transmission Date: 20250409
  Serious: Yes (Death)
  Sender: ESPERION THERAPEUTICS
  Company Number: IT-DAIICHI SANKYO EUROPE GMBH-DSE-2024-144422

PATIENT

DRUGS (2)
  1. BEMPEDOIC ACID\EZETIMIBE [Suspect]
     Active Substance: BEMPEDOIC ACID\EZETIMIBE
     Indication: Hypercholesterolaemia
     Dosage: 1 DF, QD (180/10 MG, ONCE DAILY)
     Route: 048
     Dates: start: 20231010
  2. ATENOLOL [Concomitant]
     Active Substance: ATENOLOL
     Indication: Palpitations
     Dosage: 12.5 MG, QD (DAILY)
     Route: 048
     Dates: start: 20110308

REACTIONS (1)
  - Death [Fatal]

NARRATIVE: CASE EVENT DATE: 20240319
